FAERS Safety Report 18595781 (Version 1)
Quarter: 2020Q4

REPORT INFORMATION
  Report Type: Spontaneous
  Country: US (occurrence: US)
  Receive Date: 20201030
  Receipt Date: 20201030
  Transmission Date: 20210114
  Serious: No
  Sender: FDA-Public Use
  Company Number: None

PATIENT
  Age: 7 Decade
  Sex: Male

DRUGS (3)
  1. HYDROXYCHLOROQUINE [Suspect]
     Active Substance: HYDROXYCHLOROQUINE
     Indication: COVID-19
     Dates: start: 2020
  2. IMMUNOGLOBULINS, INTRAVENOUS [Suspect]
     Active Substance: HUMAN IMMUNOGLOBULIN G
  3. AZITHROMYCIN ANHYDROUS. [Suspect]
     Active Substance: AZITHROMYCIN ANHYDROUS

REACTIONS (13)
  - Quadriparesis [None]
  - Frontotemporal dementia [None]
  - Hallucination, visual [None]
  - Myoclonus [None]
  - Memory impairment [None]
  - Hyperreflexia [None]
  - Guillain-Barre syndrome [None]
  - Ataxia [None]
  - Areflexia [None]
  - Autonomic nervous system imbalance [None]
  - Delusion [None]
  - Intentional product use issue [None]
  - Confusional state [None]
